FAERS Safety Report 5918670-5 (Version None)
Quarter: 2008Q4

REPORT INFORMATION
  Report Type: 
  Country: None (occurrence: None)
  Receive Date: 20081015
  Receipt Date: 20080527
  Transmission Date: 20090506
  Serious: No
  Sender: FDA-Public Use
  Company Number: US-ASTRAZENECA-2008UW10786

PATIENT
  Age: 84 Year
  Sex: Female

DRUGS (1)
  1. SYMBICORT [Suspect]
     Dosage: 80-/4.5 UG - 2 PUFFS BID
     Route: 055
     Dates: start: 20080301

REACTIONS (1)
  - HEART RATE DECREASED [None]
